FAERS Safety Report 16468297 (Version 1)
Quarter: 2019Q3

REPORT INFORMATION
  Report Type: Spontaneous
  Country: US (occurrence: US)
  Receive Date: 20190622
  Receipt Date: 20190622
  Transmission Date: 20191004
  Serious: Yes (Disabling)
  Sender: FDA-Public Use
  Company Number: None

PATIENT
  Age: 89 Year
  Sex: Female
  Weight: 50.8 kg

DRUGS (5)
  1. LEVOTHYROXIN [Concomitant]
     Active Substance: LEVOTHYROXINE
  2. DUREZOL [Concomitant]
     Active Substance: DIFLUPREDNATE
  3. PROTONIX [Concomitant]
     Active Substance: PANTOPRAZOLE SODIUM
  4. DILTIAZEM. [Concomitant]
     Active Substance: DILTIAZEM
  5. AVASTIN [Suspect]
     Active Substance: BEVACIZUMAB

REACTIONS (6)
  - Syringe issue [None]
  - Optic atrophy [None]
  - Recalled product [None]
  - Post procedural complication [None]
  - Eye pain [None]
  - Blindness unilateral [None]

NARRATIVE: CASE EVENT DATE: 20190326
